FAERS Safety Report 21902076 (Version 2)
Quarter: 2023Q1

REPORT INFORMATION
  Report Type: Spontaneous
  Country: US (occurrence: US)
  Receive Date: 20230124
  Receipt Date: 20230330
  Transmission Date: 20230417
  Serious: Yes (Other)
  Sender: FDA-Public Use
  Company Number: US-BoehringerIngelheim-2023-BI-213383

PATIENT
  Sex: Male

DRUGS (1)
  1. OFEV [Suspect]
     Active Substance: NINTEDANIB
     Indication: Product used for unknown indication

REACTIONS (3)
  - Pulmonary hypertension [Unknown]
  - Cervical vertebral fracture [Unknown]
  - Bedridden [Unknown]
